FAERS Safety Report 23613472 (Version 1)
Quarter: 2024Q1

REPORT INFORMATION
  Report Type: Report from Study
  Country: US (occurrence: US)
  Receive Date: 20240308
  Receipt Date: 20240308
  Transmission Date: 20240410
  Serious: Yes (Other)
  Sender: FDA-Public Use
  Company Number: US-JAZZ PHARMACEUTICALS-2023-US-006816

PATIENT
  Sex: Female

DRUGS (14)
  1. XYWAV [Suspect]
     Active Substance: CALCIUM OXYBATE\MAGNESIUM OXYBATE\POTASSIUM OXYBATE\SODIUM OXYBATE
     Indication: Narcolepsy
     Dosage: 5G AT BEDTIME AND 4G 2.5 TO 4 HRS LATER
     Route: 048
  2. DOXYCYCLINE [Suspect]
     Active Substance: DOXYCYCLINE
     Indication: Product used for unknown indication
     Dosage: UNK
  3. DEPLIN [CALCIUM LEVOMEFOLATE] [Concomitant]
     Indication: Product used for unknown indication
     Dosage: ALGAL OIL, DAILY
     Route: 048
     Dates: start: 20140129
  4. NEXIUM [Concomitant]
     Active Substance: ESOMEPRAZOLE MAGNESIUM
     Indication: Product used for unknown indication
     Dosage: DR  1 CAP AT BEDTIME
     Route: 048
     Dates: start: 20140129
  5. VITAMIN D3 [Concomitant]
     Active Substance: CHOLECALCIFEROL
     Indication: Product used for unknown indication
     Dosage: 2,000 UNIT
     Dates: start: 20140130
  6. LORAZEPAM [Concomitant]
     Active Substance: LORAZEPAM
     Indication: Product used for unknown indication
     Dosage: UNK
     Route: 048
     Dates: start: 20140227
  7. CARDIZEM CD [Concomitant]
     Active Substance: DILTIAZEM HYDROCHLORIDE
     Indication: Product used for unknown indication
     Dosage: UNK
     Dates: start: 20180511
  8. SINGULAIR [Concomitant]
     Active Substance: MONTELUKAST SODIUM
     Indication: Product used for unknown indication
     Dosage: UNK
     Dates: start: 20180604
  9. VIIBRYD [Concomitant]
     Active Substance: VILAZODONE HYDROCHLORIDE
     Indication: Product used for unknown indication
     Dosage: UNK
     Dates: start: 20180430
  10. ADVIL 12H [Concomitant]
     Indication: Product used for unknown indication
     Dosage: UNK
     Dates: start: 20240112
  11. TYLENOL [Concomitant]
     Active Substance: ACETAMINOPHEN
     Indication: Product used for unknown indication
     Dosage: UNK
     Dates: start: 20240112
  12. PRISTIQ EXTENDED-RELEASE [Concomitant]
     Active Substance: DESVENLAFAXINE SUCCINATE
     Indication: Product used for unknown indication
     Dosage: 1 TABLET IN MORNING
     Route: 048
  13. DILTIAZEM [Concomitant]
     Active Substance: DILTIAZEM
     Indication: Product used for unknown indication
     Dosage: 1 CAPSULE AT BEDTIME
     Route: 048
  14. METOPROLOL TARTRATE [Concomitant]
     Active Substance: METOPROLOL TARTRATE
     Indication: Product used for unknown indication
     Dosage: 1 TABLET IN THE MORNING
     Route: 048

REACTIONS (7)
  - Breast cancer [Unknown]
  - Snoring [Unknown]
  - Hyperlipidaemia [Unknown]
  - Photosensitivity reaction [Unknown]
  - Weight decreased [Recovering/Resolving]
  - Hypertension [Unknown]
  - Incorrect dose administered [Unknown]
